FAERS Safety Report 10083255 (Version 1)
Quarter: 2014Q2

REPORT INFORMATION
  Report Type: Spontaneous
  Country: US (occurrence: None)
  Receive Date: 20140415
  Receipt Date: 20140415
  Transmission Date: 20141212
  Serious: Yes (Disabling)
  Sender: FDA-Public Use
  Company Number: None

PATIENT
  Age: 57 Year
  Sex: Female
  Weight: 70.76 kg

DRUGS (2)
  1. METRONIDAZOLE [Suspect]
     Indication: APPENDICITIS PERFORATED
     Dosage: 1 PILL, EVERY 8 HOURS, TAKEN BY MOUTH
     Route: 048
     Dates: start: 20140322, end: 20140328
  2. METRONIDAZOLE [Suspect]
     Indication: INFECTION
     Dosage: 1 PILL, EVERY 8 HOURS, TAKEN BY MOUTH
     Route: 048
     Dates: start: 20140322, end: 20140328

REACTIONS (4)
  - Pain in extremity [None]
  - Muscle tightness [None]
  - Gait disturbance [None]
  - Tendonitis [None]
